FAERS Safety Report 9009026 (Version 1)
Quarter: 2013Q1

REPORT INFORMATION
  Report Type: Spontaneous
  Country: US (occurrence: US)
  Receive Date: 20130111
  Receipt Date: 20130111
  Transmission Date: 20140127
  Serious: Yes (Death)
  Sender: FDA-Public Use
  Company Number: US-BAYER-2013-002184

PATIENT
  Age: 7 Year
  Sex: Male

DRUGS (1)
  1. SODIUM BICARBONATE [Suspect]

REACTIONS (1)
  - Medication error [Fatal]
